FAERS Safety Report 9780972 (Version 1)
Quarter: 2013Q4

REPORT INFORMATION
  Report Type: Spontaneous
  Country: US (occurrence: US)
  Receive Date: 20131224
  Receipt Date: 20131224
  Transmission Date: 20140711
  Serious: Yes (Hospitalization, Other)
  Sender: FDA-Public Use
  Company Number: US-UCBSA-106935

PATIENT
  Age: 46 Year
  Sex: Male

DRUGS (13)
  1. LACOSAMIDE [Suspect]
     Indication: STATUS EPILEPTICUS
  2. LEVETIRACETAM [Suspect]
     Indication: STATUS EPILEPTICUS
  3. PHENOBARBITAL [Concomitant]
     Indication: STATUS EPILEPTICUS
  4. PHENOBARBITAL [Concomitant]
     Indication: STATUS EPILEPTICUS
     Dosage: TITRATED TO HIGH THERAPEUTIC LEVEL
  5. PREGABALIN [Concomitant]
     Indication: STATUS EPILEPTICUS
  6. PREGABALIN [Concomitant]
     Indication: STATUS EPILEPTICUS
  7. LAMOTRIGINE [Concomitant]
     Indication: STATUS EPILEPTICUS
  8. LAMOTRIGINE [Concomitant]
     Indication: STATUS EPILEPTICUS
  9. PHOSPHENYTOIN [Concomitant]
     Indication: STATUS EPILEPTICUS
  10. MIDAZOLAM [Concomitant]
     Indication: STATUS EPILEPTICUS
     Dosage: DRIP, 0.1MG/KG/HR
  11. PROPOFOL [Concomitant]
     Indication: STATUS EPILEPTICUS
     Dosage: DRIP, }10MG/KG/HR
  12. PENTOBARBITAL [Concomitant]
     Indication: STATUS EPILEPTICUS
     Dosage: DRIP
  13. LORAZEPAM [Concomitant]
     Route: 042

REACTIONS (2)
  - Drug ineffective for unapproved indication [Recovering/Resolving]
  - Overdose [Unknown]
